FAERS Safety Report 21056795 (Version 1)
Quarter: 2022Q3

REPORT INFORMATION
  Report Type: Report from Study
  Country: IN (occurrence: IN)
  Receive Date: 20220708
  Receipt Date: 20220708
  Transmission Date: 20221027
  Serious: Yes (Other)
  Sender: FDA-Public Use
  Company Number: IN-BRISTOL-MYERS SQUIBB COMPANY-2022-069281

PATIENT
  Age: 52 Year
  Sex: Male

DRUGS (1)
  1. NIVOLUMAB [Suspect]
     Active Substance: NIVOLUMAB
     Indication: Metastatic malignant melanoma
     Dosage: 2 WEEKLY
     Route: 042
     Dates: start: 20220418, end: 2022

REACTIONS (1)
  - Hepatic infection [Unknown]

NARRATIVE: CASE EVENT DATE: 20220101
